FAERS Safety Report 7383885-9 (Version None)
Quarter: 2011Q1

REPORT INFORMATION
  Report Type: 
  Country: None (occurrence: None)
  Receive Date: 20110330
  Receipt Date: 20110210
  Transmission Date: 20110831
  Serious: No
  Sender: FDA-Public Use
  Company Number: US-MYLANLABS-2011S1003098

PATIENT
  Sex: Male

DRUGS (2)
  1. PAROXETINE HYDROCHLORIDE TABLETS [Suspect]
     Route: 048
     Dates: start: 20110101
  2. PAROXETINE HYDROCHLORIDE TABLETS [Suspect]
     Indication: ANXIETY
     Route: 048
     Dates: start: 20110101, end: 20110101

REACTIONS (6)
  - ANXIETY [None]
  - HANGOVER [None]
  - DRUG INEFFECTIVE [None]
  - DIZZINESS [None]
  - ERECTILE DYSFUNCTION [None]
  - CONFUSIONAL STATE [None]
